FAERS Safety Report 13344843 (Version 2)
Quarter: 2017Q1

REPORT INFORMATION
  Report Type: Report from Study
  Country: HN (occurrence: HN)
  Receive Date: 20170317
  Receipt Date: 20170331
  Transmission Date: 20170428
  Serious: Yes (Other)
  Sender: FDA-Public Use
  Company Number: PHHY2017HN040779

PATIENT
  Sex: Male
  Weight: 129.25 kg

DRUGS (1)
  1. EXFORGE HCT [Suspect]
     Active Substance: AMLODIPINE BESYLATE\HYDROCHLOROTHIAZIDE\VALSARTAN
     Indication: HYPERTENSION
     Dosage: 1 DF (AMLODIPINE 5 MG/ HYDROCHLOROTHIAZIDE 12.5 MG/ VALSARTAN 160 MG), QD
     Route: 048

REACTIONS (3)
  - Deafness [Recovered/Resolved]
  - Influenza [Recovered/Resolved]
  - Ligament sprain [Recovered/Resolved]
